FAERS Safety Report 15676391 (Version 2)
Quarter: 2018Q4

REPORT INFORMATION
  Report Type: Spontaneous
  Country: PH (occurrence: PH)
  Receive Date: 20181130
  Receipt Date: 20181203
  Transmission Date: 20190205
  Serious: Yes (Hospitalization)
  Sender: FDA-Public Use
  Company Number: PH-EISAI MEDICAL RESEARCH-EC-2018-048181

PATIENT
  Age: 70 Year
  Sex: Male

DRUGS (1)
  1. LENVIMA [Suspect]
     Active Substance: LENVATINIB
     Indication: THYROID CANCER METASTATIC
     Dosage: UNKNOWN
     Dates: start: 201807, end: 201810

REACTIONS (1)
  - Intestinal perforation [Unknown]

NARRATIVE: CASE EVENT DATE: 201810
